FAERS Safety Report 4315886-9 (Version None)
Quarter: 2004Q1

REPORT INFORMATION
  Report Type: 
  Country: None (occurrence: None)
  Receive Date: 20040310
  Receipt Date: 20040301
  Transmission Date: 20041129
  Serious: No
  Sender: FDA-Public Use
  Company Number: 2004GB00524

PATIENT
  Age: 81 Year
  Sex: Female
  Weight: 78 kg

DRUGS (3)
  1. SEROQUEL [Suspect]
     Indication: HALLUCINATION
     Dosage: 25 MG DAILY PO
     Route: 048
     Dates: start: 20030601, end: 20040201
  2. CO-CARELDOPA [Concomitant]
  3. CO-DANTHRAMER [Concomitant]

REACTIONS (2)
  - EMOTIONAL DISORDER [None]
  - JAUNDICE [None]
